FAERS Safety Report 22979426 (Version 2)
Quarter: 2024Q1

REPORT INFORMATION
  Report Type: Spontaneous
  Country: US (occurrence: US)
  Receive Date: 20230925
  Receipt Date: 20240109
  Transmission Date: 20240409
  Serious: Yes (Other)
  Sender: FDA-Public Use
  Company Number: US-PFIZER INC-PV202300156650

PATIENT
  Age: 64 Year
  Sex: Male

DRUGS (5)
  1. DISOPYRAMIDE PHOSPHATE [Suspect]
     Active Substance: DISOPYRAMIDE PHOSPHATE
     Indication: Hypertrophic cardiomyopathy
     Dosage: 300 MG, IMMEDIATE RELEASE, 4X/DAY
  2. DISOPYRAMIDE PHOSPHATE [Suspect]
     Active Substance: DISOPYRAMIDE PHOSPHATE
     Dosage: 200 MG, IMMEDIATE RELEASE, 4X/DAY
  3. DISOPYRAMIDE PHOSPHATE [Suspect]
     Active Substance: DISOPYRAMIDE PHOSPHATE
     Dosage: 100 MG, IMMEDIATE RELEASE, 4X/DAY
  4. DISOPYRAMIDE PHOSPHATE [Suspect]
     Active Substance: DISOPYRAMIDE PHOSPHATE
     Dosage: 100 MG, IMMEDIATE RELEASE, 2X/DAY
  5. METOPROLOL SUCCINATE [Concomitant]
     Active Substance: METOPROLOL SUCCINATE
     Dosage: 25 MG, 2X/DAY

REACTIONS (4)
  - Transvalvular pressure gradient increased [Unknown]
  - Condition aggravated [Unknown]
  - Anticholinergic syndrome [Recovered/Resolved]
  - Off label use [Unknown]
